FAERS Safety Report 8473649-7 (Version None)
Quarter: 2012Q2

REPORT INFORMATION
  Report Type: 
  Country: None (occurrence: None)
  Receive Date: 20120628
  Receipt Date: 20110803
  Transmission Date: 20120825
  Serious: Yes (Death)
  Sender: FDA-Public Use
  Company Number: US-MYLANLABS-2011S1016079

PATIENT
  Age: 36 Year
  Sex: Male

DRUGS (6)
  1. CLOZAPINE [Suspect]
     Route: 048
  2. EFFEXOR [Concomitant]
  3. LUVOX [Concomitant]
  4. PROPRANOLOL [Concomitant]
  5. CLOZAPINE [Suspect]
  6. DEPAKOTE [Concomitant]

REACTIONS (1)
  - DEATH [None]
